FAERS Safety Report 7585314-9 (Version None)
Quarter: 2011Q2

REPORT INFORMATION
  Report Type: 
  Country: None (occurrence: None)
  Receive Date: 20110628
  Receipt Date: 20110628
  Transmission Date: 20111010
  Serious: Yes (Hospitalization)
  Sender: FDA-Public Use
  Company Number: None

PATIENT
  Age: 35 Year
  Sex: Female
  Weight: 100.2 kg

DRUGS (3)
  1. CARBOPLATIN [Suspect]
     Dosage: AUC-6
  2. PEMETREXED [Suspect]
     Indication: NON-SMALL CELL LUNG CANCER
     Dosage: 500MG/M2
     Dates: start: 20110101, end: 20110601
  3. BEVACIZUMAB [Concomitant]

REACTIONS (3)
  - PAIN [None]
  - PYREXIA [None]
  - NAUSEA [None]
